FAERS Safety Report 5702342-6 (Version None)
Quarter: 2008Q2

REPORT INFORMATION
  Report Type: 
  Country: None (occurrence: None)
  Receive Date: 20080411
  Receipt Date: 20080407
  Transmission Date: 20081010
  Serious: Yes (Hospitalization)
  Sender: FDA-Public Use
  Company Number: FR-BRISTOL-MYERS SQUIBB COMPANY-14140081

PATIENT
  Age: 87 Year
  Sex: Male

DRUGS (7)
  1. APROVEL TABS 150 MG [Suspect]
     Indication: HYPERTENSION
     Dosage: THERAPY DATES- UNTIL 25-SEP-2007 RESTARTED ON 08-OCT-2007
  2. PREVISCAN [Suspect]
     Dosage: 1 DOSAGE FORM = 1 TAB THERAPY DATES- UNTIL 25-SEP-2007 RESTARTED ON 02-OCT-2007
  3. PROSCAR [Suspect]
     Dosage: THERAPY DATES- UNTIL 25-SEP-2007 RESTARTED ON 08-OCT-2007
  4. DIGOXIN [Concomitant]
  5. SINGULAIR [Concomitant]
  6. PNEUMOREL [Concomitant]
  7. NOCTRAN [Concomitant]

REACTIONS (1)
  - RECTAL HAEMORRHAGE [None]
